FAERS Safety Report 18383768 (Version 1)
Quarter: 2020Q4

REPORT INFORMATION
  Report Type: Spontaneous
  Country: FR (occurrence: FR)
  Receive Date: 20201014
  Receipt Date: 20201014
  Transmission Date: 20210114
  Serious: Yes (Life-Threatening)
  Sender: FDA-Public Use
  Company Number: FR-PFIZER INC-2020395603

PATIENT
  Age: 33 Year
  Sex: Female

DRUGS (2)
  1. PREGABALIN. [Suspect]
     Active Substance: PREGABALIN
     Dosage: 400 MG, SINGLE
     Dates: start: 20200714
  2. METHADONE [Suspect]
     Active Substance: METHADONE HYDROCHLORIDE
     Dosage: 60 MG, SINGLE
     Dates: start: 20200714

REACTIONS (2)
  - Drug use disorder [Not Recovered/Not Resolved]
  - Coma [Recovered/Resolved]

NARRATIVE: CASE EVENT DATE: 2020
